FAERS Safety Report 10052356 (Version 3)
Quarter: 2014Q2

REPORT INFORMATION
  Report Type: Spontaneous
  Country: US (occurrence: US)
  Receive Date: 20140402
  Receipt Date: 20140606
  Transmission Date: 20141212
  Serious: Yes (Hospitalization)
  Sender: FDA-Public Use
  Company Number: US-SA-2014SA032615

PATIENT
  Age: 53 Year
  Sex: Male

DRUGS (1)
  1. FABRAZYME [Suspect]
     Indication: FABRY^S DISEASE
     Route: 065
     Dates: start: 2009

REACTIONS (5)
  - Chest pain [Unknown]
  - Fall [Unknown]
  - Decreased appetite [Unknown]
  - Ligament sprain [Unknown]
  - Lethargy [Unknown]
